FAERS Safety Report 7102906-1 (Version None)
Quarter: 2010Q4

REPORT INFORMATION
  Report Type: 
  Country: None (occurrence: None)
  Receive Date: 20101115
  Receipt Date: 20101104
  Transmission Date: 20110411
  Serious: Yes (Hospitalization)
  Sender: FDA-Public Use
  Company Number: CH-ASTRAZENECA-2010SE52736

PATIENT
  Age: 23 Year
  Sex: Male

DRUGS (3)
  1. SEROQUEL XR [Suspect]
     Indication: SCHIZOPHRENIA, PARANOID TYPE
     Route: 048
     Dates: end: 20101017
  2. CLOPIXOL ACUTARD [Suspect]
     Indication: SCHIZOPHRENIA, PARANOID TYPE
     Route: 030
     Dates: start: 20101018, end: 20101018
  3. ANXIOLIT [Concomitant]
     Indication: ALCOHOL ABUSE
     Route: 048

REACTIONS (4)
  - CHEST PAIN [None]
  - DYSKINESIA [None]
  - DYSTONIA [None]
  - OROPHARYNGEAL SPASM [None]
